FAERS Safety Report 26047523 (Version 1)
Quarter: 2025Q4

REPORT INFORMATION
  Report Type: Spontaneous
  Country: US (occurrence: None)
  Receive Date: 20251114
  Receipt Date: 20251114
  Transmission Date: 20260117
  Serious: No
  Sender: FDA-CTU
  Company Number: None

PATIENT

DRUGS (1)
  1. NEFFY [Suspect]
     Active Substance: EPINEPHRINE
     Indication: Anaphylactic reaction
     Dates: start: 20251107, end: 20251107

REACTIONS (4)
  - Rhinalgia [None]
  - Headache [None]
  - Oropharyngeal pain [None]
  - Ear pain [None]

NARRATIVE: CASE EVENT DATE: 20251107
